FAERS Safety Report 5724776-6 (Version None)
Quarter: 2008Q2

REPORT INFORMATION
  Report Type: 
  Country: None (occurrence: None)
  Receive Date: 20080501
  Receipt Date: 20080501
  Transmission Date: 20081010
  Serious: Yes (Death)
  Sender: FDA-Public Use
  Company Number: None

PATIENT
  Age: 59 Year
  Sex: Male
  Weight: 99.3377 kg

DRUGS (1)
  1. HEPARIN [Suspect]
     Indication: RENAL FAILURE
     Dosage: WITH DIALYSIS HEMODIALYSI
     Route: 010
     Dates: start: 20071115, end: 20071213

REACTIONS (4)
  - ABDOMINAL PAIN UPPER [None]
  - COUGH [None]
  - FEELING OF BODY TEMPERATURE CHANGE [None]
  - STOMACH DISCOMFORT [None]
